FAERS Safety Report 9161927 (Version 2)
Quarter: 2013Q1

REPORT INFORMATION
  Report Type: Spontaneous
  Country: US (occurrence: None)
  Receive Date: 20130122
  Receipt Date: 20130208
  Transmission Date: 20140127
  Serious: Yes (Other)
  Sender: FDA-Public Use
  Company Number: 2013034472

PATIENT
  Sex: Female
  Weight: 58.06 kg

DRUGS (12)
  1. HIZENTRA [Suspect]
     Indication: PRIMARY IMMUNODEFICIENCY SYNDROME
     Dosage: 6 GM 1X/WEEK, 2 GM OVER 1 TO 2 HOURS SUBCUTANEOUS
     Dates: start: 20130109, end: 20130109
  2. DIPHENHYDRAMINE (DIPHENHYDRAMINE) [Concomitant]
  3. EPINEPHRINE(EPINEPHRINE) [Concomitant]
  4. ANAKIT (EPINEPHRINE) [Concomitant]
  5. OGEN (ESTROPIPATE) [Concomitant]
  6. ZITHROMAX (AZITHROMYCIN) [Concomitant]
  7. LIPITOR (ATORVASTATIN CALCIUM) [Concomitant]
  8. DOXYCYCLINE HYCLATE (DOXYCYCLINE HYCLATE) [Concomitant]
  9. FISH OIL (FISH OIL) [Concomitant]
  10. CALCIUM + VITAMIN D (CALCIUM W/VITAMIN C/VITAMIN D)) [Concomitant]
  11. LIDOCAINE/PRILOCAINE (EMLA /00675501/) [Concomitant]
  12. AMITIZA (ALL OTHER THERAPEUTIC PRODUCTS) [Concomitant]

REACTIONS (1)
  - Infusion site abscess [None]
